FAERS Safety Report 23524785 (Version 1)
Quarter: 2024Q1

REPORT INFORMATION
  Report Type: Spontaneous
  Country: NL (occurrence: NL)
  Receive Date: 20240215
  Receipt Date: 20240215
  Transmission Date: 20240410
  Serious: Yes (Life-Threatening, Other)
  Sender: FDA-Public Use
  Company Number: NL-LRB-00944179

PATIENT
  Age: 44 Year
  Sex: Male
  Weight: 55 kg

DRUGS (2)
  1. DIAZEPAM [Suspect]
     Active Substance: DIAZEPAM
     Indication: Neuralgia
     Dosage: 5 MILLIGRAM, 3 TIMES A DAY
     Route: 065
     Dates: start: 20230407
  2. DIAZEPAM [Suspect]
     Active Substance: DIAZEPAM
     Indication: Myalgia

REACTIONS (6)
  - Loss of consciousness [Not Recovered/Not Resolved]
  - Migraine [Not Recovered/Not Resolved]
  - Derealisation [Not Recovered/Not Resolved]
  - Anxiety [Unknown]
  - Dyspnoea [Unknown]
  - Pyrexia [Unknown]
